FAERS Safety Report 13204892 (Version 1)
Quarter: 2017Q1

REPORT INFORMATION
  Report Type: Spontaneous
  Country: US (occurrence: US)
  Receive Date: 20170208
  Receipt Date: 20170208
  Transmission Date: 20170428
  Serious: Yes (Life-Threatening)
  Sender: FDA-Public Use
  Company Number: None

PATIENT
  Age: 54 Year
  Sex: Female
  Weight: 126.21 kg

DRUGS (20)
  1. MAGNESIUM OXIDE. [Concomitant]
     Active Substance: MAGNESIUM OXIDE
  2. ALPRAZOLAM. [Concomitant]
     Active Substance: ALPRAZOLAM
  3. ULORIC [Concomitant]
     Active Substance: FEBUXOSTAT
  4. TUMERIC [Concomitant]
     Active Substance: TURMERIC
  5. XELJANZ [Suspect]
     Active Substance: TOFACITINIB CITRATE
     Indication: RHEUMATOID ARTHRITIS
     Dosage: 2 PILLS TWICE DAILY MOUTH?
     Route: 048
     Dates: start: 20170117, end: 20170126
  6. VITAMIN D [Concomitant]
     Active Substance: CHOLECALCIFEROL
  7. MEXILETINE [Concomitant]
     Active Substance: MEXILETINE
  8. MILK THISTLE [Concomitant]
     Active Substance: MILK THISTLE
  9. MULTI-VIT [Concomitant]
     Active Substance: VITAMINS
  10. ZINC. [Concomitant]
     Active Substance: ZINC
  11. VITAMIN C [Concomitant]
     Active Substance: ASCORBIC ACID
  12. SELENIUM [Concomitant]
     Active Substance: SELENIUM
  13. SYNTHROID 125 [Concomitant]
  14. COLCRYS [Concomitant]
     Active Substance: COLCHICINE
  15. ZOLPIDEM [Concomitant]
     Active Substance: ZOLPIDEM\ZOLPIDEM TARTRATE
  16. ASPIRIN. [Concomitant]
     Active Substance: ASPIRIN
  17. FISH OIL [Concomitant]
     Active Substance: FISH OIL
  18. FOLIC ACID. [Concomitant]
     Active Substance: FOLIC ACID
  19. CLOPIDOGREL [Concomitant]
     Active Substance: CLOPIDOGREL BISULFATE
  20. CARVEDILOL. [Concomitant]
     Active Substance: CARVEDILOL

REACTIONS (6)
  - Headache [None]
  - Dizziness [None]
  - Ventricular extrasystoles [None]
  - Influenza like illness [None]
  - Dyspnoea [None]
  - Nausea [None]

NARRATIVE: CASE EVENT DATE: 20170126
